FAERS Safety Report 14647297 (Version 1)
Quarter: 2018Q1

REPORT INFORMATION
  Report Type: Spontaneous
  Country: ES (occurrence: ES)
  Receive Date: 20180316
  Receipt Date: 20180316
  Transmission Date: 20180509
  Serious: Yes (Life-Threatening, Hospitalization, Other)
  Sender: FDA-Public Use
  Company Number: ES-MACLEODS PHARMACEUTICALS US LTD-MAC2018011216

PATIENT

DRUGS (8)
  1. LITHIUM. [Concomitant]
     Active Substance: LITHIUM
     Indication: PSYCHOTIC DISORDER
     Dosage: 400 MG, QD
     Route: 048
  2. LITHIUM. [Concomitant]
     Active Substance: LITHIUM
     Indication: MAJOR DEPRESSION
  3. CLOMIPRAMINE [Concomitant]
     Active Substance: CLOMIPRAMINE
     Indication: PSYCHOTIC DISORDER
     Dosage: 225 MG, QD
     Route: 048
     Dates: start: 201605
  4. QUETIAPINE 100 MG [Suspect]
     Active Substance: QUETIAPINE
     Indication: PSYCHOTIC DISORDER
  5. RISPERIDONE. [Suspect]
     Active Substance: RISPERIDONE
     Indication: PSYCHOTIC DISORDER
     Dosage: 6 MG, QD
     Route: 048
     Dates: start: 201605, end: 20170310
  6. CLOMIPRAMINE [Concomitant]
     Active Substance: CLOMIPRAMINE
     Indication: PSYCHOTIC DISORDER
  7. RISPERIDONE. [Suspect]
     Active Substance: RISPERIDONE
     Indication: DEPRESSION
  8. QUETIAPINE 100 MG [Suspect]
     Active Substance: QUETIAPINE
     Indication: MAJOR DEPRESSION
     Dosage: 100 MG, QD
     Route: 048

REACTIONS (25)
  - Parkinsonian gait [Unknown]
  - Psychotic symptom [Recovering/Resolving]
  - Catatonia [Recovering/Resolving]
  - Delusion [Recovered/Resolved]
  - Amnesia [Unknown]
  - Neuroleptic malignant syndrome [Recovering/Resolving]
  - Mutism [Recovering/Resolving]
  - Tachycardia [Recovering/Resolving]
  - Hypertension [Recovering/Resolving]
  - Hallucination [Recovered/Resolved]
  - Affective disorder [Recovering/Resolving]
  - Confusional state [Recovering/Resolving]
  - Anhedonia [Recovering/Resolving]
  - Bradykinesia [Unknown]
  - Poverty of speech [Recovering/Resolving]
  - Weight decreased [Recovering/Resolving]
  - Negativism [Recovering/Resolving]
  - Hypotension [Recovering/Resolving]
  - Hyperhidrosis [Recovering/Resolving]
  - Stupor [Recovering/Resolving]
  - Stereotypy [Recovering/Resolving]
  - Pyrexia [Recovering/Resolving]
  - Musculoskeletal stiffness [Recovering/Resolving]
  - Somnolence [Recovering/Resolving]
  - Disorientation [Recovering/Resolving]

NARRATIVE: CASE EVENT DATE: 20170310
